FAERS Safety Report 6724091-8 (Version None)
Quarter: 2010Q2

REPORT INFORMATION
  Report Type: 
  Country: None (occurrence: None)
  Receive Date: 20100513
  Receipt Date: 20100507
  Transmission Date: 20101027
  Serious: Yes (Other)
  Sender: FDA-Public Use
  Company Number: US-PERRIGO-10US009465

PATIENT
  Sex: Male
  Weight: 81.633 kg

DRUGS (1)
  1. IBUPROFEN 200MG 647 [Suspect]
     Indication: HEADACHE
     Dosage: 400 MG, SINGLE
     Route: 048
     Dates: start: 20100506, end: 20100506

REACTIONS (7)
  - CHILLS [None]
  - COLD SWEAT [None]
  - DIZZINESS [None]
  - INCORRECT STORAGE OF DRUG [None]
  - PAIN [None]
  - PYREXIA [None]
  - SWELLING FACE [None]
